FAERS Safety Report 25139626 (Version 3)
Quarter: 2025Q2

REPORT INFORMATION
  Report Type: Report from Study
  Country: US (occurrence: US)
  Receive Date: 20250331
  Receipt Date: 20250506
  Transmission Date: 20250717
  Serious: No
  Sender: ABBVIE
  Company Number: US-ABBVIE-6197188

PATIENT
  Age: 76 Year
  Sex: Male
  Weight: 108.86 kg

DRUGS (5)
  1. LUPRON [Suspect]
     Active Substance: LEUPROLIDE ACETATE
     Indication: Androgen therapy
     Route: 030
     Dates: start: 20250318
  2. NUBEQA [Concomitant]
     Active Substance: DAROLUTAMIDE
     Indication: Hormone therapy
  3. CALCIUM [Concomitant]
     Active Substance: CALCIUM
     Indication: Product used for unknown indication
  4. CLARITIN [Concomitant]
     Active Substance: LORATADINE
     Indication: Adjuvant therapy
  5. LISINOPRIL [Concomitant]
     Active Substance: LISINOPRIL
     Indication: Hypertension

REACTIONS (1)
  - Pain in extremity [Recovered/Resolved]

NARRATIVE: CASE EVENT DATE: 20250318
